FAERS Safety Report 10977058 (Version 1)
Quarter: 2015Q2

REPORT INFORMATION
  Report Type: Spontaneous
  Country: GB (occurrence: GB)
  Receive Date: 20150402
  Receipt Date: 20150402
  Transmission Date: 20150821
  Serious: Yes (Other)
  Sender: FDA-Public Use
  Company Number: GB-JNJFOC-20150314187

PATIENT
  Sex: Female

DRUGS (2)
  1. IMODIUM [Suspect]
     Active Substance: LOPERAMIDE HYDROCHLORIDE
     Route: 048
  2. IMODIUM [Suspect]
     Active Substance: LOPERAMIDE HYDROCHLORIDE
     Indication: DIARRHOEA
     Route: 048
     Dates: start: 2015, end: 20150317

REACTIONS (13)
  - Flatulence [Unknown]
  - Malaise [Unknown]
  - Loss of consciousness [Unknown]
  - Dry skin [Unknown]
  - Headache [Unknown]
  - Nightmare [Unknown]
  - Musculoskeletal chest pain [Unknown]
  - Dry lung syndrome [Unknown]
  - Abnormal behaviour [Unknown]
  - Screaming [Unknown]
  - Abasia [Unknown]
  - Pain [Unknown]
  - Dry mouth [Unknown]
